FAERS Safety Report 7539507 (Version 4)
Quarter: 2014Q1

REPORT INFORMATION
  Report Type: Spontaneous
  Country: US (occurrence: US)
  Receive Date: 20100813
  Receipt Date: 20140213
  Transmission Date: 20141002
  Serious: Yes (Other)
  Sender: FDA-Public Use
  Company Number: US-BAYER-201030376NA

PATIENT
  Age: 21 Year
  Sex: Female
  Weight: 111 kg

DRUGS (8)
  1. YAZ [Suspect]
     Dosage: UNK UNK, UNK
     Route: 048
     Dates: start: 200709, end: 200909
  2. VICODIN [Concomitant]
  3. MINOCYCLINE [Concomitant]
     Dosage: 100 MG, BID
     Route: 048
     Dates: start: 20070712
  4. MACROBID [Concomitant]
     Dosage: 100 MG, BID
     Dates: start: 20090202
  5. NORCO [Concomitant]
     Indication: PAIN
     Dosage: UNK
  6. SIMETHICONE [Concomitant]
  7. PROMETHAZINE [Concomitant]
  8. MOTRIN [Concomitant]

REACTIONS (3)
  - Cholelithiasis [None]
  - Bile duct obstruction [None]
  - Cholecystitis chronic [None]
